FAERS Safety Report 24463311 (Version 1)
Quarter: 2024Q4

REPORT INFORMATION
  Report Type: Spontaneous
  Country: GB (occurrence: GB)
  Receive Date: 20241018
  Receipt Date: 20241018
  Transmission Date: 20250114
  Serious: Yes (Hospitalization, Other)
  Sender: BOEHRINGER INGELHEIM
  Company Number: None

PATIENT
  Age: 51 Year
  Sex: Female

DRUGS (4)
  1. EMPAGLIFLOZIN [Suspect]
     Active Substance: EMPAGLIFLOZIN
     Indication: Product used for unknown indication
  2. LINAGLIPTIN [Concomitant]
     Active Substance: LINAGLIPTIN
     Indication: Product used for unknown indication
  3. PREGABALIN [Concomitant]
     Active Substance: PREGABALIN
     Indication: Product used for unknown indication
     Dosage: 200 MG CAPSULES TAKE ONE EACH MORNING?300 MG CAPSULES TAKE ONE EACH NIGHT
  4. METFORMIN [Concomitant]
     Active Substance: METFORMIN HYDROCHLORIDE
     Indication: Product used for unknown indication
     Dosage: 1 G MODIFIED-RELEASE TABLETS TWO TO BE TAKEN ONCE A DAY WITH EVENING?MEAL?FOA-MODIFIED-RELEASE TABLE

REACTIONS (2)
  - Cholecystitis [Recovered/Resolved]
  - Euglycaemic diabetic ketoacidosis [Unknown]
